FAERS Safety Report 15725073 (Version 4)
Quarter: 2019Q1

REPORT INFORMATION
  Report Type: Report from Study
  Country: None (occurrence: US)
  Receive Date: 20181214
  Receipt Date: 20190109
  Transmission Date: 20190417
  Serious: Yes (Hospitalization, Other)
  Sender: FDA-Public Use
  Company Number: US-ABBVIE-18S-163-2583773-00

PATIENT
  Sex: Female
  Weight: 69.92 kg

DRUGS (7)
  1. PRILOSEC [Concomitant]
     Active Substance: OMEPRAZOLE MAGNESIUM
     Indication: PRODUCT USED FOR UNKNOWN INDICATION
  2. CALCIUM [Concomitant]
     Active Substance: CALCIUM
     Indication: PRODUCT USED FOR UNKNOWN INDICATION
  3. NEURONTIN [Concomitant]
     Active Substance: GABAPENTIN
     Indication: NEUROPATHY PERIPHERAL
  4. GLUCOSAMINE [Concomitant]
     Active Substance: GLUCOSAMINE
     Indication: PRODUCT USED FOR UNKNOWN INDICATION
  5. CREON [Suspect]
     Active Substance: PANCRELIPASE AMYLASE\PANCRELIPASE LIPASE\PANCRELIPASE PROTEASE
     Indication: PANCREATITIS CHRONIC
     Dosage: 2 CAPSULES THREE TIMES DAILY WITH MEALS
     Route: 048
     Dates: start: 20160223
  6. ALLOPURINOL. [Concomitant]
     Active Substance: ALLOPURINOL
     Indication: PRODUCT USED FOR UNKNOWN INDICATION
  7. VITAMIN B12 [Concomitant]
     Active Substance: CYANOCOBALAMIN
     Indication: PRODUCT USED FOR UNKNOWN INDICATION

REACTIONS (10)
  - Foot deformity [Recovered/Resolved]
  - Pancreatolithiasis [Unknown]
  - Gastritis [Recovered/Resolved]
  - Urinary incontinence [Recovering/Resolving]
  - Pancreatic cyst [Unknown]
  - Gastric polyps [Recovered/Resolved]
  - Pancreatitis acute [Not Recovered/Not Resolved]
  - Bladder spasm [Recovering/Resolving]
  - Pancreatic duct dilatation [Recovering/Resolving]
  - Intraductal papillary mucinous neoplasm [Unknown]

NARRATIVE: CASE EVENT DATE: 2017
